FAERS Safety Report 16938348 (Version 1)
Quarter: 2019Q4

REPORT INFORMATION
  Report Type: Spontaneous
  Country: GR (occurrence: GR)
  Receive Date: 20191019
  Receipt Date: 20191019
  Transmission Date: 20200122
  Serious: Yes (Other)
  Sender: FDA-Public Use
  Company Number: GR-AXELLIA-002751

PATIENT
  Age: 50 Year
  Sex: Male

DRUGS (3)
  1. COLISTIN [Suspect]
     Active Substance: COLISTIN
     Indication: ACINETOBACTER INFECTION
     Dosage: 250 X 10*3 IU Q.D, INTRAVENTRICULAR (IVT)
     Route: 042
  2. MEROPENEM. [Concomitant]
     Active Substance: MEROPENEM
  3. TIGECYCLINE. [Concomitant]
     Active Substance: TIGECYCLINE
     Indication: ACINETOBACTER INFECTION
     Route: 042

REACTIONS (1)
  - Drug ineffective [Unknown]
